FAERS Safety Report 9395914 (Version 1)
Quarter: 2013Q3

REPORT INFORMATION
  Report Type: Spontaneous
  Country: US (occurrence: US)
  Receive Date: 20130711
  Receipt Date: 20130711
  Transmission Date: 20140515
  Serious: Yes (Other)
  Sender: FDA-Public Use
  Company Number: US-COVIDIEN/TYCO HEALTHCARE/MALLINCKRODT-T201204616

PATIENT
  Sex: Female

DRUGS (3)
  1. FENTANYL CITRATE [Suspect]
     Dosage: QUANTITY 2
  2. OXYCODONE/ACETAMINOPHEN [Suspect]
     Dosage: 5 TABS/PILLS/CAPSULES
  3. METHADOSE [Suspect]
     Dosage: 1 TAB/PILL/CAPSULE

REACTIONS (1)
  - Intentional drug misuse [Unknown]
